FAERS Safety Report 12998982 (Version 1)
Quarter: 2016Q4

REPORT INFORMATION
  Report Type: Spontaneous
  Country: US (occurrence: US)
  Receive Date: 20161205
  Receipt Date: 20161205
  Transmission Date: 20170207
  Serious: Yes (Hospitalization)
  Sender: FDA-Public Use
  Company Number: US-ELI_LILLY_AND_COMPANY-US201611010178

PATIENT
  Sex: Male

DRUGS (9)
  1. LISINOPRIL. [Concomitant]
     Active Substance: LISINOPRIL
  2. HUMULIN R U-500 [Suspect]
     Active Substance: INSULIN HUMAN
     Indication: TYPE 2 DIABETES MELLITUS
     Dosage: 75 U, TID
     Route: 065
  3. METOPROLOL. [Concomitant]
     Active Substance: METOPROLOL
  4. HUMULIN R [Suspect]
     Active Substance: INSULIN HUMAN
     Indication: TYPE 2 DIABETES MELLITUS
     Dosage: UNK, UNKNOWN
     Route: 065
  5. METFORMIN [Concomitant]
     Active Substance: METFORMIN HYDROCHLORIDE
  6. BABY ASPIRIN [Concomitant]
     Active Substance: ASPIRIN
  7. HYDROCODONE [Concomitant]
     Active Substance: HYDROCODONE
  8. GABAPENTIN. [Concomitant]
     Active Substance: GABAPENTIN
  9. ATORVASTATIN [Concomitant]
     Active Substance: ATORVASTATIN

REACTIONS (7)
  - Prostate cancer [Recovered/Resolved]
  - Back pain [Unknown]
  - Gait disturbance [Unknown]
  - Incorrect product formulation administered [Unknown]
  - Colon cancer [Recovered/Resolved]
  - Visual impairment [Not Recovered/Not Resolved]
  - Intervertebral disc protrusion [Unknown]

NARRATIVE: CASE EVENT DATE: 2011
